FAERS Safety Report 10621624 (Version 1)
Quarter: 2014Q4

REPORT INFORMATION
  Report Type: Spontaneous
  Country: US (occurrence: None)
  Receive Date: 20141201
  Receipt Date: 20141201
  Transmission Date: 20150529
  Serious: Yes (Disabling)
  Sender: FDA-Public Use
  Company Number: None

PATIENT
  Age: 51 Year
  Sex: Female
  Weight: 48.99 kg

DRUGS (4)
  1. ANASTROZOLE. [Suspect]
     Active Substance: ANASTROZOLE
     Indication: RECURRENT CANCER
     Dosage: 1 TABLET
     Route: 048
  2. ANASTROZOLE. [Suspect]
     Active Substance: ANASTROZOLE
     Indication: PROPHYLAXIS
     Dosage: 1 TABLET
     Route: 048
  3. ANASTROZOLE. [Suspect]
     Active Substance: ANASTROZOLE
     Indication: METASTASIS
     Dosage: 1 TABLET
     Route: 048
  4. ANASTROZOLE. [Suspect]
     Active Substance: ANASTROZOLE
     Indication: OESTROGEN RECEPTOR POSITIVE BREAST CANCER
     Dosage: 1 TABLET
     Route: 048

REACTIONS (14)
  - Sensitivity of teeth [None]
  - Asthenia [None]
  - Weight decreased [None]
  - Middle insomnia [None]
  - Mental impairment [None]
  - Decreased interest [None]
  - Tooth discolouration [None]
  - Depression [None]
  - Dysarthria [None]
  - Nerve injury [None]
  - Fatigue [None]
  - Decreased appetite [None]
  - Feeling abnormal [None]
  - Arthralgia [None]
